FAERS Safety Report 9509126 (Version 1)
Quarter: 2013Q3

REPORT INFORMATION
  Report Type: Spontaneous
  Country: US (occurrence: US)
  Receive Date: 20130909
  Receipt Date: 20130909
  Transmission Date: 20140515
  Serious: No
  Sender: FDA-Public Use
  Company Number: US-BRISTOL-MYERS SQUIBB COMPANY-17353525

PATIENT
  Sex: Female

DRUGS (3)
  1. ABILIFY [Suspect]
     Indication: DEPRESSION
     Dates: end: 201205
  2. CYMBALTA [Concomitant]
     Route: 048
  3. ESTROGEN [Concomitant]

REACTIONS (1)
  - Tardive dyskinesia [Recovered/Resolved]
